FAERS Safety Report 7345501-1 (Version None)
Quarter: 2011Q1

REPORT INFORMATION
  Report Type: 
  Country: None (occurrence: None)
  Receive Date: 20110310
  Receipt Date: 20110301
  Transmission Date: 20110831
  Serious: Yes (Hospitalization, Other)
  Sender: FDA-Public Use
  Company Number: US-ASTRAZENECA-2010SE16733

PATIENT
  Age: 902 Month
  Sex: Female

DRUGS (1)
  1. NEXIUM [Suspect]
     Route: 048

REACTIONS (7)
  - FALL [None]
  - WRONG DRUG ADMINISTERED [None]
  - SPINAL FRACTURE [None]
  - POST PROCEDURAL COMPLICATION [None]
  - BARRETT'S OESOPHAGUS [None]
  - BRONCHITIS [None]
  - HERNIA REPAIR [None]
